FAERS Safety Report 21530058 (Version 1)
Quarter: 2022Q4

REPORT INFORMATION
  Report Type: Spontaneous
  Country: CN (occurrence: CN)
  Receive Date: 20221031
  Receipt Date: 20221031
  Transmission Date: 20230112
  Serious: Yes (Other)
  Sender: FDA-Public Use
  Company Number: CN-BAXTER-2022BAX022933

PATIENT
  Sex: Female

DRUGS (10)
  1. CYCLOPHOSPHAMIDE [Suspect]
     Active Substance: CYCLOPHOSPHAMIDE
     Indication: Carcinoma ex-pleomorphic adenoma
     Dosage: ONE CYCLE, 800 MG, DAY 1
     Route: 042
     Dates: start: 2021, end: 2021
  2. CYCLOPHOSPHAMIDE [Suspect]
     Active Substance: CYCLOPHOSPHAMIDE
     Indication: Metastases to bone
  3. CYCLOPHOSPHAMIDE [Suspect]
     Active Substance: CYCLOPHOSPHAMIDE
     Indication: Metastases to lung
  4. CYCLOPHOSPHAMIDE [Suspect]
     Active Substance: CYCLOPHOSPHAMIDE
     Indication: Metastases to spine
  5. EPIRUBICIN [Suspect]
     Active Substance: EPIRUBICIN
     Indication: Carcinoma ex-pleomorphic adenoma
     Dosage: ONE CYCLE 100 MG, DAY 1
     Route: 042
     Dates: start: 2021, end: 2021
  6. EPIRUBICIN [Suspect]
     Active Substance: EPIRUBICIN
     Indication: Metastases to bone
  7. EPIRUBICIN [Suspect]
     Active Substance: EPIRUBICIN
     Indication: Metastases to lung
  8. EPIRUBICIN [Suspect]
     Active Substance: EPIRUBICIN
     Indication: Metastases to spine
  9. PACLITAXEL [Concomitant]
     Active Substance: PACLITAXEL
     Indication: Carcinoma ex-pleomorphic adenoma
     Dosage: 370 MG, DAY 1
     Route: 042
  10. CARBOPLATIN [Concomitant]
     Active Substance: CARBOPLATIN
     Indication: Carcinoma ex-pleomorphic adenoma
     Dosage: 400 MG, DAY 1
     Route: 042

REACTIONS (2)
  - Agranulocytosis [Unknown]
  - Vomiting [Unknown]

NARRATIVE: CASE EVENT DATE: 20210101
